FAERS Safety Report 9464869 (Version 2)
Quarter: 2013Q3

REPORT INFORMATION
  Report Type: Spontaneous
  Country: NO (occurrence: NO)
  Receive Date: 20130819
  Receipt Date: 20130819
  Transmission Date: 20140515
  Serious: Yes (Death)
  Sender: FDA-Public Use
  Company Number: PHHY2010NO03276

PATIENT
  Sex: Male
  Weight: 2.14 kg

DRUGS (4)
  1. HYDROCHLOROTHIAZIDE [Suspect]
     Dosage: UNK UKN, UNK
     Route: 064
  2. CANDESARTAN CILEXETIL [Suspect]
     Indication: MIGRAINE PROPHYLAXIS
     Dosage: UNK UKN, UNK
     Route: 064
  3. ATACAND [Suspect]
     Dosage: 8 MG, QD
     Route: 064
     Dates: end: 20071226
  4. NORMORIX MITE [Concomitant]
     Dosage: 1 DF (UNKNOWN CONCENTRATION) QD
     Route: 064
     Dates: end: 20061226

REACTIONS (4)
  - Pulmonary hypoplasia [Fatal]
  - Renal hypertrophy [Fatal]
  - Death neonatal [Fatal]
  - Head deformity [Fatal]
